FAERS Safety Report 24215214 (Version 1)
Quarter: 2024Q3

REPORT INFORMATION
  Report Type: Report from Study
  Country: SA (occurrence: SA)
  Receive Date: 20240816
  Receipt Date: 20240816
  Transmission Date: 20241017
  Serious: Yes (Other)
  Sender: SANDOZ
  Company Number: SA-SANDOZ-SDZ2024SA072305

PATIENT
  Age: 8 Year
  Sex: Male

DRUGS (2)
  1. OMNITROPE [Suspect]
     Active Substance: SOMATROPIN
     Indication: Growth hormone deficiency
     Dosage: UNK, QD
     Route: 065
     Dates: start: 20240401
  2. OMNITROPE [Suspect]
     Active Substance: SOMATROPIN
     Dosage: UNK, QOD
     Route: 065

REACTIONS (2)
  - Angina pectoris [Unknown]
  - Off label use [Unknown]

NARRATIVE: CASE EVENT DATE: 20240728
